FAERS Safety Report 24605138 (Version 1)
Quarter: 2024Q4

REPORT INFORMATION
  Report Type: Spontaneous
  Country: US (occurrence: US)
  Receive Date: 20241111
  Receipt Date: 20241111
  Transmission Date: 20250115
  Serious: No
  Sender: PARATEK PHARMACEUTICALS
  Company Number: US-PARATEK PHARMACEUTICALS, INC.-2022PTK00186

PATIENT
  Sex: Female

DRUGS (2)
  1. NUZYRA [Suspect]
     Active Substance: OMADACYCLINE
     Indication: Mycobacterium abscessus infection
     Dosage: UNK UNK, 1X/DAY, IN THE MORNING, AFTER AT LEAST 4 HOURS WITH NO FOOD OR DRINK OTHER THAN WATER
     Route: 048
  2. NUZYRA [Suspect]
     Active Substance: OMADACYCLINE
     Dosage: UNK UNK, 1X/DAY AT BEDTIME
     Route: 048

REACTIONS (2)
  - Nausea [Unknown]
  - Off label use [Not Recovered/Not Resolved]
